FAERS Safety Report 14170474 (Version 4)
Quarter: 2017Q4

REPORT INFORMATION
  Report Type: Report from Study
  Country: US (occurrence: US)
  Receive Date: 20171108
  Receipt Date: 20171221
  Transmission Date: 20180321
  Serious: Yes (Hospitalization)
  Sender: FDA-Public Use
  Company Number: US-ACTELION-A-US2017-161893

PATIENT
  Age: 71 Year
  Sex: Female

DRUGS (21)
  1. OPSUMIT [Suspect]
     Active Substance: MACITENTAN
     Indication: PULMONARY ARTERIAL HYPERTENSION
     Dosage: 10 MG, QD
     Route: 048
     Dates: start: 20170727, end: 20171001
  2. ULORIC [Concomitant]
     Active Substance: FEBUXOSTAT
     Dosage: UNK
     Dates: start: 2017
  3. REVATIO [Concomitant]
     Active Substance: SILDENAFIL CITRATE
     Dosage: 60 MG, TID
  4. ALLOPURINOL. [Concomitant]
     Active Substance: ALLOPURINOL
     Dosage: 300 MG, QD
  5. FOLIC [Concomitant]
     Active Substance: FOLIC ACID
     Dosage: UNK MG, QD
  6. OXYGEN. [Concomitant]
     Active Substance: OXYGEN
     Dosage: 3 L/MIN, UNK
  7. AZATHIOPRINE. [Concomitant]
     Active Substance: AZATHIOPRINE
     Dosage: UNK
     Dates: start: 2016
  8. FUROSEMIDE. [Concomitant]
     Active Substance: FUROSEMIDE
     Dosage: 80 MG, QD
  9. ASPIRIN. [Concomitant]
     Active Substance: ASPIRIN
     Dosage: 81 MG, UNK
  10. ESOMEPRAZOLE [Concomitant]
     Active Substance: ESOMEPRAZOLE
     Dosage: 40 MG, QD
  11. ASMANEX [Concomitant]
     Active Substance: MOMETASONE FUROATE
     Dosage: 220 MG, 2 PUFFS AM 1 PUFF PM
  12. VITAMIN D [Concomitant]
     Active Substance: CHOLECALCIFEROL
     Dosage: 2000 IU, QD
  13. PREDNISONE. [Concomitant]
     Active Substance: PREDNISONE
     Dosage: 1 MG, QOD
  14. VITAMINS NOS [Concomitant]
     Active Substance: VITAMINS
     Dosage: UNK UNK, QOD
  15. LEVOTHYROXINE. [Concomitant]
     Active Substance: LEVOTHYROXINE
     Dosage: 137 MCG, QD
  16. URSODIOL. [Concomitant]
     Active Substance: URSODIOL
     Dosage: 900 MG, QD
  17. FAMOTIDINE. [Concomitant]
     Active Substance: FAMOTIDINE
     Dosage: 40 MG, QPM
  18. SIMVASTATIN. [Concomitant]
     Active Substance: SIMVASTATIN
     Dosage: 20 MG, QPM
  19. SPIRONOLACTONE. [Concomitant]
     Active Substance: SPIRONOLACTONE
     Dosage: 25 MG, QD
  20. IRON [Concomitant]
     Active Substance: IRON
     Dosage: 45 MG, QD
  21. ESCITALOPRAM [Concomitant]
     Active Substance: ESCITALOPRAM OXALATE
     Dosage: 5 MG, QPM

REACTIONS (13)
  - Cardiac pacemaker insertion [Unknown]
  - Decreased appetite [Recovering/Resolving]
  - Haemorrhage [Recovering/Resolving]
  - Malaise [Recovered/Resolved]
  - Fatigue [Recovering/Resolving]
  - Transfusion [Recovered/Resolved]
  - Chills [Recovered/Resolved]
  - Dyspnoea [Recovered/Resolved]
  - Heart rate irregular [Recovered/Resolved]
  - Diarrhoea [Recovered/Resolved]
  - Vomiting [Recovered/Resolved]
  - Gait disturbance [Recovered/Resolved]
  - Blood count abnormal [Recovered/Resolved]

NARRATIVE: CASE EVENT DATE: 20171001
